FAERS Safety Report 4668224-6 (Version None)
Quarter: 2005Q2

REPORT INFORMATION
  Report Type: 
  Country: None (occurrence: None)
  Receive Date: 20050523
  Receipt Date: 20050210
  Transmission Date: 20051028
  Serious: Yes (Other)
  Sender: FDA-Public Use
  Company Number: PHEH2005US01935

PATIENT
  Age: 72 Year
  Sex: Female

DRUGS (4)
  1. ZOMETA [Suspect]
     Indication: METASTASES TO BONE
     Dosage: UNK, UNK
     Dates: start: 20031001, end: 20050101
  2. FASLODEX [Concomitant]
     Indication: BREAST CANCER
     Dosage: 250 MG, QMO
     Dates: start: 20030114
  3. TAXOTERE [Concomitant]
     Indication: BREAST CANCER
     Dosage: 50 MG, QMO
  4. DEXAMETHASONE [Concomitant]
     Dosage: 4 MG, BID
     Dates: start: 20040909

REACTIONS (1)
  - OSTEONECROSIS [None]
